FAERS Safety Report 8612927-5 (Version None)
Quarter: 2012Q3

REPORT INFORMATION
  Report Type: 
  Country: None (occurrence: None)
  Receive Date: 20120822
  Receipt Date: 20120517
  Transmission Date: 20120928
  Serious: No
  Sender: FDA-Public Use
  Company Number: US-ALLERGAN-1204958US

PATIENT
  Age: 64 Year
  Sex: Male

DRUGS (2)
  1. SANCTURA XR [Suspect]
     Indication: URINARY INCONTINENCE
     Dosage: 60 MG, QD
     Dates: end: 20120301
  2. LUVOX [Concomitant]

REACTIONS (1)
  - DRUG INEFFECTIVE [None]
